FAERS Safety Report 10461755 (Version 2)
Quarter: 2016Q2

REPORT INFORMATION
  Report Type: Spontaneous
  Country: FR (occurrence: FR)
  Receive Date: 20140918
  Receipt Date: 20160526
  Transmission Date: 20160815
  Serious: Yes (Hospitalization)
  Sender: FDA-Public Use
  Company Number: PHHY2014FR120558

PATIENT
  Age: 84 Year
  Sex: Male

DRUGS (9)
  1. SOLUPRED [Concomitant]
     Active Substance: PREDNISOLONE
     Route: 065
  2. LOXEN//NICARDIPINE HYDROCHLORIDE [Concomitant]
     Active Substance: NICARDIPINE HYDROCHLORIDE
     Route: 065
  3. PREVISCAN [Concomitant]
     Active Substance: FLUINDIONE
     Route: 065
  4. CIFLOX [Suspect]
     Active Substance: CIPROFLOXACIN
     Indication: INFLAMMATION
     Dosage: 2 DF, QD
     Route: 048
     Dates: start: 20140513, end: 20140608
  5. CALCIPARINE [Suspect]
     Active Substance: HEPARIN CALCIUM
     Route: 065
  6. VANCOMYCIN SANDOZ [Suspect]
     Active Substance: VANCOMYCIN
     Route: 065
     Dates: start: 20140522, end: 20140526
  7. OMEPRAZOLE. [Concomitant]
     Active Substance: OMEPRAZOLE
     Route: 065
  8. FORTUM [Concomitant]
     Active Substance: CEFTAZIDIME
     Route: 065
  9. BRICANYL [Concomitant]
     Active Substance: TERBUTALINE SULFATE
     Route: 065

REACTIONS (4)
  - Eye pain [Recovered/Resolved]
  - Linear IgA disease [Recovered/Resolved]
  - Petechiae [Recovered/Resolved]
  - Dermatitis bullous [Recovered/Resolved]

NARRATIVE: CASE EVENT DATE: 201406
